FAERS Safety Report 25362162 (Version 1)
Quarter: 2025Q2

REPORT INFORMATION
  Report Type: Report from Study
  Country: IE (occurrence: IE)
  Receive Date: 20250527
  Receipt Date: 20250527
  Transmission Date: 20250716
  Serious: Yes (Disabling)
  Sender: TAKEDA
  Company Number: IE-TAKEDA-2025TUS037879

PATIENT
  Age: 63 Year
  Sex: Male

DRUGS (3)
  1. HUMAN IMMUNOGLOBULIN G\HYALURONIDASE RECOMBINANT HUMAN [Suspect]
     Active Substance: HUMAN IMMUNOGLOBULIN G\HYALURONIDASE (HUMAN RECOMBINANT)
     Indication: Chronic inflammatory demyelinating polyradiculoneuropathy
  2. HUMAN IMMUNOGLOBULIN G\HYALURONIDASE RECOMBINANT HUMAN [Suspect]
     Active Substance: HUMAN IMMUNOGLOBULIN G\HYALURONIDASE (HUMAN RECOMBINANT)
     Dosage: 77.5 GRAM, MONTHLY
     Dates: start: 20250521
  3. HUMAN IMMUNOGLOBULIN G\HYALURONIDASE RECOMBINANT HUMAN [Suspect]
     Active Substance: HUMAN IMMUNOGLOBULIN G\HYALURONIDASE (HUMAN RECOMBINANT)
     Dosage: 77.5 GRAM, MONTHLY

REACTIONS (7)
  - Vision blurred [Recovered/Resolved]
  - Illness [Recovered/Resolved]
  - Grip strength decreased [Recovered/Resolved]
  - Fatigue [Recovered/Resolved]
  - Incorrect dose administered [Recovered/Resolved]
  - Infusion site warmth [Not Recovered/Not Resolved]
  - Infusion site erythema [Not Recovered/Not Resolved]

NARRATIVE: CASE EVENT DATE: 20250411
